FAERS Safety Report 4899194-3 (Version None)
Quarter: 2006Q1

REPORT INFORMATION
  Report Type: 
  Country: None (occurrence: None)
  Receive Date: 20060131
  Receipt Date: 20060120
  Transmission Date: 20060701
  Serious: Yes (Death, Life-Threatening, Hospitalization)
  Sender: FDA-Public Use
  Company Number: 200610224GDS

PATIENT
  Age: 88 Year
  Sex: Male

DRUGS (3)
  1. ASPIRIN [Suspect]
     Dosage: 100 MG, TOTAL DAILY; ORAL
     Route: 048
     Dates: end: 20050923
  2. DICLOFENAC [Suspect]
     Indication: CHEST PAIN
     Dosage: 150 MG, TOTAL DAILY; ORAL
     Route: 048
     Dates: start: 20050901, end: 20050923
  3. AMILORIDE HCL AND HYDROCHLOROTHIAZIDE [Concomitant]

REACTIONS (12)
  - BRONCHOPNEUMONIA [None]
  - CELLULITIS [None]
  - CHEST PAIN [None]
  - DUODENAL ULCER PERFORATION [None]
  - EXTRAVASATION [None]
  - GASTROINTESTINAL PERFORATION [None]
  - IATROGENIC INJURY [None]
  - MALNUTRITION [None]
  - PLEURAL DISORDER [None]
  - PNEUMONIA ASPIRATION [None]
  - POST PROCEDURAL COMPLICATION [None]
  - SUTURE RELATED COMPLICATION [None]
